FAERS Safety Report 10072337 (Version 2)
Quarter: 2014Q2

REPORT INFORMATION
  Report Type: Spontaneous
  Country: JP (occurrence: JP)
  Receive Date: 20140411
  Receipt Date: 20140424
  Transmission Date: 20141212
  Serious: Yes (Other)
  Sender: FDA-Public Use
  Company Number: JP-JNJFOC-20140402277

PATIENT
  Sex: 0

DRUGS (2)
  1. ONEDURO [Suspect]
     Indication: CANCER PAIN
     Route: 062
     Dates: start: 2014
  2. ONEDURO [Suspect]
     Indication: CANCER PAIN
     Route: 062
     Dates: start: 201403, end: 201403

REACTIONS (2)
  - Depressed level of consciousness [Recovered/Resolved]
  - Inappropriate schedule of drug administration [Unknown]
